FAERS Safety Report 14298891 (Version 1)
Quarter: 2017Q4

REPORT INFORMATION
  Report Type: Spontaneous
  Country: US (occurrence: US)
  Receive Date: 20171218
  Receipt Date: 20171218
  Transmission Date: 20180321
  Serious: No
  Sender: FDA-Public Use
  Company Number: None

PATIENT
  Age: 89 Year
  Sex: Female
  Weight: 88.45 kg

DRUGS (17)
  1. METOPROLOL SUCCINATE. [Concomitant]
     Active Substance: METOPROLOL SUCCINATE
  2. ASPIRIN. [Concomitant]
     Active Substance: ASPIRIN
  3. GABAPENTIN. [Concomitant]
     Active Substance: GABAPENTIN
  4. GARLIC. [Concomitant]
     Active Substance: GARLIC
  5. PRAVASTATIN. [Concomitant]
     Active Substance: PRAVASTATIN
  6. FISH OIL [Concomitant]
     Active Substance: FISH OIL
  7. LEVOTHYROXINE. [Concomitant]
     Active Substance: LEVOTHYROXINE
  8. GEMFIBROZIL. [Concomitant]
     Active Substance: GEMFIBROZIL
  9. PIOGLITAZONE 30MG [Suspect]
     Active Substance: PIOGLITAZONE
     Indication: DIABETES MELLITUS
     Dosage: 1 PILL
     Route: 048
     Dates: start: 20170810
  10. VITAMIN D [Concomitant]
     Active Substance: CHOLECALCIFEROL
  11. AREDS [Concomitant]
     Active Substance: MINERALS\VITAMINS
  12. GLIMEPRIDE [Concomitant]
     Active Substance: GLIMEPIRIDE
  13. LOSARTAN. [Concomitant]
     Active Substance: LOSARTAN
  14. FLAXSEED [Concomitant]
     Active Substance: FLAX SEED
  15. CALCIUM [Concomitant]
     Active Substance: CALCIUM
  16. VITAMIN B1 [Concomitant]
     Active Substance: THIAMINE HYDROCHLORIDE
  17. VITAMIN B12 [Concomitant]
     Active Substance: CYANOCOBALAMIN

REACTIONS (4)
  - Peripheral swelling [None]
  - Joint swelling [None]
  - Tongue disorder [None]
  - Diarrhoea [None]

NARRATIVE: CASE EVENT DATE: 20170810
